FAERS Safety Report 13703230 (Version 8)
Quarter: 2018Q4

REPORT INFORMATION
  Report Type: Spontaneous
  Country: JP (occurrence: JP)
  Receive Date: 20170629
  Receipt Date: 20181101
  Transmission Date: 20190204
  Serious: Yes (Death, Life-Threatening, Hospitalization, Other)
  Sender: FDA-Public Use
  Company Number: JP-INCYTE CORPORATION-2017IN005153

PATIENT

DRUGS (1)
  1. JAKAVI [Suspect]
     Active Substance: RUXOLITINIB
     Indication: MYELOFIBROSIS
     Dosage: 30 MG, UNK
     Route: 048
     Dates: start: 20170612, end: 20170619

REACTIONS (6)
  - Electrolyte imbalance [Unknown]
  - Anuria [Unknown]
  - Gastrointestinal necrosis [Fatal]
  - Shock [Recovered/Resolved]
  - Aortic thrombosis [Recovered/Resolved]
  - Hyperkalaemia [Recovered/Resolved]

NARRATIVE: CASE EVENT DATE: 20170620
